FAERS Safety Report 7556315 (Version 5)
Quarter: 2013Q1

REPORT INFORMATION
  Report Type: Spontaneous
  Country: US (occurrence: US)
  Receive Date: 20100827
  Receipt Date: 20130306
  Transmission Date: 20140127
  Serious: Yes (Hospitalization, Other)
  Sender: FDA-Public Use
  Company Number: US-BAYER-201031537NA

PATIENT
  Age: 38 Year
  Sex: Female
  Weight: 53.52 kg

DRUGS (5)
  1. EXCEDRIN EXTRA STRENGTH [Concomitant]
     Indication: MIGRAINE
  2. PEPCID [Concomitant]
  3. TYLENOL [Concomitant]
  4. YAZ [Suspect]
     Indication: CONTRACEPTION
     Dosage: UNK
     Dates: start: 200501, end: 200805
  5. YAZ [Suspect]
     Indication: PREMENSTRUAL DYSPHORIC DISORDER

REACTIONS (4)
  - Ischaemic stroke [Unknown]
  - Hemiparesis [Unknown]
  - Hemiplegia [None]
  - Gait disturbance [None]
